FAERS Safety Report 12848274 (Version 1)
Quarter: 2016Q4

REPORT INFORMATION
  Report Type: Spontaneous
  Country: US (occurrence: US)
  Receive Date: 20161014
  Receipt Date: 20161014
  Transmission Date: 20170207
  Serious: No
  Sender: FDA-Public Use
  Company Number: US-JNJFOC-20160726815

PATIENT
  Sex: Female

DRUGS (4)
  1. BENADRYL [Suspect]
     Active Substance: DIPHENHYDRAMINE HYDROCHLORIDE
     Indication: PYREXIA
     Dosage: 2 TABLETS, ONCE
     Route: 048
     Dates: start: 20160726
  2. BENADRYL [Suspect]
     Active Substance: DIPHENHYDRAMINE HYDROCHLORIDE
     Indication: SWELLING
     Dosage: 2 TABLETS, ONCE
     Route: 048
     Dates: start: 20160726
  3. TYLENOL [Suspect]
     Active Substance: ACETAMINOPHEN
     Indication: SWELLING
     Dosage: 2 CAPLETS, ONCE
     Route: 048
     Dates: start: 20160726
  4. TYLENOL [Suspect]
     Active Substance: ACETAMINOPHEN
     Indication: PYREXIA
     Dosage: 2 CAPLETS, ONCE
     Route: 048
     Dates: start: 20160726

REACTIONS (2)
  - Off label use [Unknown]
  - Product use issue [Unknown]
